FAERS Safety Report 7963184-4 (Version None)
Quarter: 2011Q4

REPORT INFORMATION
  Report Type: 
  Country: None (occurrence: None)
  Receive Date: 20111208
  Receipt Date: 20111130
  Transmission Date: 20120403
  Serious: Yes (Other)
  Sender: FDA-Public Use
  Company Number: US-BIOGENIDEC-2010BI040349

PATIENT
  Age: 63 Year
  Sex: Male

DRUGS (7)
  1. VITAMIN D [Concomitant]
  2. IBUPROFEN [Concomitant]
  3. REMERON [Concomitant]
  4. TYSABRI [Suspect]
     Indication: MULTIPLE SCLEROSIS
     Route: 042
     Dates: start: 20080625
  5. TYSABRI [Suspect]
     Route: 042
     Dates: start: 20110414
  6. ASPIRIN [Concomitant]
  7. CALCIUM [Concomitant]

REACTIONS (1)
  - PROSTATE CANCER [None]
